FAERS Safety Report 7285651-1 (Version None)
Quarter: 2011Q1

REPORT INFORMATION
  Report Type: 
  Country: None (occurrence: None)
  Receive Date: 20110210
  Receipt Date: 20110207
  Transmission Date: 20110831
  Serious: Yes (Other)
  Sender: FDA-Public Use
  Company Number: A0912284A

PATIENT
  Age: 46 Year
  Sex: Female

DRUGS (4)
  1. UNKNOWN [Concomitant]
  2. SINGULAIR [Concomitant]
  3. CLARITIN [Concomitant]
  4. ADVAIR [Suspect]
     Dosage: 2PUFF PER DAY
     Route: 055

REACTIONS (3)
  - BLINDNESS [None]
  - DRUG ADMINISTRATION ERROR [None]
  - BLINDNESS UNILATERAL [None]
